FAERS Safety Report 5150993-2 (Version None)
Quarter: 2006Q4

REPORT INFORMATION
  Report Type: 
  Country: None (occurrence: None)
  Receive Date: 20061108
  Receipt Date: 20061024
  Transmission Date: 20070319
  Serious: Yes (Other)
  Sender: FDA-Public Use
  Company Number: 15036

PATIENT
  Age: 63 Year
  Sex: Female

DRUGS (3)
  1. DOPAMINE [Suspect]
     Indication: HAEMODYNAMIC INSTABILITY
  2. DOPAMINE [Suspect]
     Indication: HYPOTENSION
  3. DOPAMINE [Suspect]
     Indication: SINUS TACHYCARDIA

REACTIONS (2)
  - LEFT VENTRICLE OUTFLOW TRACT OBSTRUCTION [None]
  - MITRAL VALVE INCOMPETENCE [None]
